FAERS Safety Report 9781943 (Version 1)
Quarter: 2013Q4

REPORT INFORMATION
  Report Type: Other
  Country: GB (occurrence: GB)
  Receive Date: 20131225
  Receipt Date: 20131225
  Transmission Date: 20140711
  Serious: Yes (Other)
  Sender: FDA-Public Use
  Company Number: GB-GLENMARK GENERICS INC.-2013GMK007807

PATIENT
  Age: 11 Year
  Sex: Female
  Weight: 22 kg

DRUGS (4)
  1. MONTELUKAST [Suspect]
     Indication: ASTHMA
     Dosage: 5 MG, UNK
     Route: 048
     Dates: start: 20130711
  2. DESLORATADINE [Concomitant]
     Indication: PRODUCT USED FOR UNKNOWN INDICATION
     Dosage: 5 MG, UNK
     Route: 048
     Dates: start: 2013
  3. SERETIDE [Concomitant]
     Indication: PRODUCT USED FOR UNKNOWN INDICATION
     Dosage: 2 DF, BID
     Dates: start: 2009
  4. STEROID NOS [Concomitant]
     Indication: ECZEMA
     Dosage: UNK
     Route: 061

REACTIONS (1)
  - Eczema [Recovered/Resolved]
